FAERS Safety Report 12718752 (Version 1)
Quarter: 2016Q3

REPORT INFORMATION
  Report Type: Spontaneous
  Country: US (occurrence: US)
  Receive Date: 20160906
  Receipt Date: 20160906
  Transmission Date: 20161109
  Serious: Yes (Hospitalization, Other)
  Sender: FDA-Public Use
  Company Number: US-GLAXOSMITHKLINE-US2016128148

PATIENT
  Age: 76 Year
  Sex: Female

DRUGS (13)
  1. ALBUTEROL WITH NEBULIZER [Concomitant]
  2. SIMVASTATIN. [Concomitant]
     Active Substance: SIMVASTATIN
  3. ADVAIR DISKUS [Suspect]
     Active Substance: FLUTICASONE PROPIONATE\SALMETEROL XINAFOATE
     Indication: ASTHMA
     Dosage: 1 PUFF(S), BID
     Route: 055
  4. DELZICOL [Concomitant]
     Active Substance: MESALAMINE
  5. OMEPRAZOLE. [Concomitant]
     Active Substance: OMEPRAZOLE
  6. VITAMIN B12 [Concomitant]
     Active Substance: CYANOCOBALAMIN
  7. XANAX [Concomitant]
     Active Substance: ALPRAZOLAM
  8. BUSPAR [Concomitant]
     Active Substance: BUSPIRONE HYDROCHLORIDE
  9. LEVOTHYROXINE. [Concomitant]
     Active Substance: LEVOTHYROXINE
  10. SPIRONOLACTONE. [Concomitant]
     Active Substance: SPIRONOLACTONE
  11. VITAMIN C [Concomitant]
     Active Substance: ASCORBIC ACID
  12. HYDROCHLORTHIAZIDE [Concomitant]
     Active Substance: HYDROCHLOROTHIAZIDE
  13. ASPIRIN. [Concomitant]
     Active Substance: ASPIRIN

REACTIONS (4)
  - Diverticulitis [Unknown]
  - Urinary tract infection [Unknown]
  - Colitis [Unknown]
  - Clostridium difficile colitis [Unknown]

NARRATIVE: CASE EVENT DATE: 2016
